FAERS Safety Report 6472424-2 (Version None)
Quarter: 2009Q4

REPORT INFORMATION
  Report Type: 
  Country: None (occurrence: None)
  Receive Date: 20091201
  Receipt Date: 20091119
  Transmission Date: 20100525
  Serious: Yes (Other)
  Sender: FDA-Public Use
  Company Number: 232705K09USA

PATIENT
  Age: 70 Year
  Sex: Female

DRUGS (10)
  1. REBIF [Suspect]
     Indication: MULTIPLE SCLEROSIS
     Dosage: 22 MCG, 3 IN 1 WEEKS, SUBCUTANEOUS
     Route: 058
     Dates: start: 20080814
  2. CHLOROZOXAZONE (CHILOROXAZONE) [Concomitant]
  3. SAL-TROPINE (ATROPINE SULFATE) [Concomitant]
  4. OMEPRAZOLE (OMERPAZOLE) [Concomitant]
  5. LORAZEPAM [Concomitant]
  6. DETROL [Concomitant]
  7. TYLENOL EXTR-STRENGTH (PARACETAMOL) [Concomitant]
  8. TYLENOL WITH CODEINE (PANADEINE CO) [Concomitant]
  9. SIMVASTATIN [Concomitant]
  10. TYLENOL PM (TYLENOL PM) [Concomitant]

REACTIONS (2)
  - LYMPHOMA [None]
  - NON-HODGKIN'S LYMPHOMA [None]
